FAERS Safety Report 4697864-3 (Version None)
Quarter: 2005Q2

REPORT INFORMATION
  Report Type: 
  Country: None (occurrence: None)
  Receive Date: 20050623
  Receipt Date: 20050609
  Transmission Date: 20051028
  Serious: Yes (Hospitalization)
  Sender: FDA-Public Use
  Company Number: 200511968FR

PATIENT
  Age: 63 Year
  Sex: Female

DRUGS (5)
  1. RIFAMPIN AND ISONIAZID [Suspect]
     Indication: LYMPH NODE TUBERCULOSIS
     Route: 048
     Dates: start: 20041101
  2. MYAMBUTOL [Concomitant]
     Dates: start: 20040901, end: 20041101
  3. RIFATER [Concomitant]
     Dates: start: 20040901, end: 20041101
  4. PRITOR [Concomitant]
     Route: 048
  5. VASTEN [Concomitant]
     Route: 048

REACTIONS (2)
  - VISUAL ACUITY REDUCED [None]
  - VISUAL FIELD DEFECT [None]
